FAERS Safety Report 5504395-7 (Version None)
Quarter: 2007Q4

REPORT INFORMATION
  Report Type: 
  Country: None (occurrence: None)
  Receive Date: 20071101
  Receipt Date: 20071024
  Transmission Date: 20080405
  Serious: Yes (Other)
  Sender: FDA-Public Use
  Company Number: US-ELI_LILLY_AND_COMPANY-US200710005952

PATIENT
  Sex: Female

DRUGS (11)
  1. HUMALOG [Suspect]
  2. HUMULIN N [Suspect]
  3. HUMULIN U [Suspect]
  4. ILETIN [Suspect]
  5. TOPROL-XL [Concomitant]
  6. IMDUR [Concomitant]
  7. ZETIA [Concomitant]
  8. PLAVIX [Concomitant]
  9. THYROXIN T3 [Concomitant]
  10. T4 [Concomitant]
  11. DOPAMINE HCL [Concomitant]

REACTIONS (15)
  - ADVERSE DRUG REACTION [None]
  - ATRIOVENTRICULAR BLOCK COMPLETE [None]
  - BLOOD GLUCOSE DECREASED [None]
  - BLOOD GLUCOSE INCREASED [None]
  - CARDIOGENIC SHOCK [None]
  - CHEST PAIN [None]
  - CORONARY ARTERY OCCLUSION [None]
  - GINGIVAL DISORDER [None]
  - GLOMERULAR FILTRATION RATE INCREASED [None]
  - HYPOTENSION [None]
  - LOSS OF CONSCIOUSNESS [None]
  - MYOCARDIAL INFARCTION [None]
  - ROAD TRAFFIC ACCIDENT [None]
  - STENT OCCLUSION [None]
  - VAGINAL HAEMORRHAGE [None]
